FAERS Safety Report 14571572 (Version 9)
Quarter: 2020Q1

REPORT INFORMATION
  Report Type: Report from Study
  Country: JP (occurrence: JP)
  Receive Date: 20180226
  Receipt Date: 20200213
  Transmission Date: 20200409
  Serious: Yes (Hospitalization, Other)
  Sender: FDA-Public Use
  Company Number: JP-AMGEN-JPNCT2017074232

PATIENT
  Age: 81 Year
  Sex: Female
  Weight: 42 kg

DRUGS (22)
  1. HEPARINOID [Concomitant]
     Active Substance: CHONDROITIN SULFATE (BOVINE)
     Indication: DRY SKIN PROPHYLAXIS
     Dosage: UNK
     Route: 062
     Dates: start: 20161125
  2. PANITUMUMAB [Suspect]
     Active Substance: PANITUMUMAB
     Indication: RECTAL CANCER
     Dosage: 250 MILLIGRAM, Q2WK
     Route: 041
     Dates: start: 20160929, end: 20161013
  3. 5-FU [FLUOROURACIL] [Suspect]
     Active Substance: FLUOROURACIL
     Dosage: 200 MILLIGRAM/SQ. METER, Q2WK
     Route: 040
     Dates: start: 20170330, end: 20180201
  4. CALCIUM LEVOFOLINATE [Suspect]
     Active Substance: LEVOLEUCOVORIN CALCIUM
     Dosage: 225 MILLIGRAM, Q2WK
     Route: 041
     Dates: start: 20170216, end: 20170302
  5. CALCIUM LEVOFOLINATE [Suspect]
     Active Substance: LEVOLEUCOVORIN CALCIUM
     Dosage: 225 MILLIGRAM, Q2WK
     Route: 041
     Dates: start: 20170330, end: 20180201
  6. PANITUMUMAB [Suspect]
     Active Substance: PANITUMUMAB
     Dosage: 250 MILLIGRAM, Q2WK
     Route: 041
     Dates: start: 20170330, end: 20180201
  7. OXALIPLATIN. [Concomitant]
     Active Substance: OXALIPLATIN
     Dosage: 65 MILLIGRAM/SQ. METER, Q2WK
     Route: 041
     Dates: start: 20161110, end: 20170302
  8. PANITUMUMAB [Suspect]
     Active Substance: PANITUMUMAB
     Dosage: UNK
     Route: 041
     Dates: start: 20180621
  9. OXALIPLATIN. [Concomitant]
     Active Substance: OXALIPLATIN
     Indication: RECTAL CANCER
     Dosage: 100 MILLIGRAM, Q2WK
     Route: 041
     Dates: start: 20160929, end: 20161013
  10. 5-FU [FLUOROURACIL] [Suspect]
     Active Substance: FLUOROURACIL
     Dosage: 200 MILLIGRAM/SQ. METER, Q2WK
     Route: 040
     Dates: start: 20161110, end: 20170302
  11. 5-FU [FLUOROURACIL] [Suspect]
     Active Substance: FLUOROURACIL
     Dosage: 2000 MILLIGRAM/SQ. METER, Q2WK
     Route: 041
     Dates: start: 20161110, end: 20170302
  12. MAGMITT [Concomitant]
     Active Substance: MAGNESIUM OXIDE
     Indication: DEFAECATION DISORDER
     Dosage: 330 MILLIGRAM, TID
     Route: 048
  13. BONVIVA [Concomitant]
     Active Substance: IBANDRONATE SODIUM
     Indication: OSTEOPOROSIS
     Dosage: 1 MILLIGRAM, QMO
     Route: 042
     Dates: start: 20171225
  14. PANITUMUMAB [Suspect]
     Active Substance: PANITUMUMAB
     Dosage: 250 MILLIGRAM, Q2WK
     Route: 041
     Dates: start: 20161110, end: 20170302
  15. 5-FU [FLUOROURACIL] [Suspect]
     Active Substance: FLUOROURACIL
     Dosage: UNK
     Route: 040
     Dates: start: 20180621
  16. CALCIUM LEVOFOLINATE [Suspect]
     Active Substance: LEVOLEUCOVORIN CALCIUM
     Indication: RECTAL CANCER
     Dosage: 250 MILLIGRAM, Q2WK
     Route: 041
     Dates: start: 20160929, end: 20161013
  17. CALCIUM LEVOFOLINATE [Suspect]
     Active Substance: LEVOLEUCOVORIN CALCIUM
     Dosage: UNK
     Route: 041
     Dates: start: 20180621
  18. 5-FU [FLUOROURACIL] [Suspect]
     Active Substance: FLUOROURACIL
     Indication: RECTAL CANCER
     Dosage: 500 MILLIGRAM, Q2WK
     Route: 040
     Dates: start: 20160929, end: 20161013
  19. 5-FU [FLUOROURACIL] [Suspect]
     Active Substance: FLUOROURACIL
     Dosage: 3050 MILLIGRAM, Q2WK
     Route: 041
     Dates: start: 20160929, end: 20161013
  20. 5-FU [FLUOROURACIL] [Suspect]
     Active Substance: FLUOROURACIL
     Dosage: 2000 MILLIGRAM/SQ. METER, Q2WK
     Route: 041
     Dates: start: 20170330, end: 20180201
  21. 5-FU [FLUOROURACIL] [Suspect]
     Active Substance: FLUOROURACIL
     Dosage: UNK
     Route: 041
     Dates: start: 20180621
  22. CALCIUM LEVOFOLINATE [Suspect]
     Active Substance: LEVOLEUCOVORIN CALCIUM
     Dosage: UNK UNK, Q2WK
     Route: 041
     Dates: start: 20161110, end: 20170202

REACTIONS (11)
  - Infection [Recovered/Resolved]
  - Rash [Not Recovered/Not Resolved]
  - White blood cell count decreased [Recovered/Resolved]
  - Decreased appetite [Recovered/Resolved]
  - Hypokalaemia [Recovered/Resolved]
  - Hypoaesthesia [Not Recovered/Not Resolved]
  - Electrolyte imbalance [Recovered/Resolved]
  - Hypomagnesaemia [Recovered/Resolved]
  - Hypomagnesaemia [Recovered/Resolved]
  - Neutrophil count decreased [Recovered/Resolved]
  - Neuropathy peripheral [Not Recovered/Not Resolved]

NARRATIVE: CASE EVENT DATE: 20180210
